FAERS Safety Report 8614674-2 (Version None)
Quarter: 2012Q3

REPORT INFORMATION
  Report Type: 
  Country: None (occurrence: None)
  Receive Date: 20120823
  Receipt Date: 20120330
  Transmission Date: 20120928
  Serious: Yes (Hospitalization)
  Sender: FDA-Public Use
  Company Number: JP-009507513-1208JPN007316

PATIENT

DRUGS (10)
  1. PEG-INTRON [Suspect]
     Dosage: 0.9MCG/KG/WEEK
     Route: 058
     Dates: start: 20120621, end: 20120621
  2. TELAVIC [Suspect]
     Indication: HEPATITIS C
     Route: 048
     Dates: start: 20120117, end: 20120205
  3. REBETOL [Suspect]
     Route: 048
     Dates: start: 20120127, end: 20120205
  4. URSO 250 [Concomitant]
     Indication: HEPATITIS C
     Route: 048
     Dates: start: 20120223
  5. REBETOL [Suspect]
     Dosage: 200MG/2 DAY
     Route: 048
     Dates: start: 20120613, end: 20120621
  6. PEG-INTRON [Suspect]
     Dosage: 1.8MCG/KG/WEEK
     Route: 058
     Dates: start: 20120508, end: 20120620
  7. PEG-INTRON [Suspect]
     Indication: HEPATITIS C
     Dosage: 80MCG/WEEK
     Route: 058
     Dates: start: 20120117, end: 20120201
  8. REBETOL [Suspect]
     Indication: HEPATITIS C
     Route: 048
     Dates: start: 20120117, end: 20120126
  9. REBETOL [Suspect]
     Route: 048
     Dates: start: 20120508, end: 20120612
  10. TELAVIC [Suspect]
     Route: 048
     Dates: start: 20120508, end: 20120621

REACTIONS (3)
  - HAEMOGLOBIN DECREASED [None]
  - RENAL TUBULAR NECROSIS [None]
  - ANAEMIA [None]
